FAERS Safety Report 7032762-1 (Version None)
Quarter: 2010Q4

REPORT INFORMATION
  Report Type: 
  Country: None (occurrence: None)
  Receive Date: 20101007
  Receipt Date: 20100927
  Transmission Date: 20110411
  Serious: No
  Sender: FDA-Public Use
  Company Number: US-PFIZER INC-2010122241

PATIENT
  Sex: Female

DRUGS (2)
  1. NEURONTIN [Suspect]
     Dosage: UNK
     Dates: start: 20030101, end: 20060401
  2. AVONEX [Suspect]

REACTIONS (2)
  - ALOPECIA [None]
  - INFLUENZA LIKE ILLNESS [None]
